FAERS Safety Report 9364131 (Version 3)
Quarter: 2013Q3

REPORT INFORMATION
  Report Type: Spontaneous
  Country: FR (occurrence: FR)
  Receive Date: 20130624
  Receipt Date: 20130705
  Transmission Date: 20140515
  Serious: Yes (Hospitalization, Other)
  Sender: FDA-Public Use
  Company Number: FR-JNJFOC-20130611053

PATIENT
  Age: 85 Year
  Sex: Female

DRUGS (8)
  1. XARELTO [Suspect]
     Indication: CEREBROVASCULAR ACCIDENT PROPHYLAXIS
     Route: 048
     Dates: start: 20130325, end: 2013
  2. XARELTO [Suspect]
     Indication: ATRIAL FIBRILLATION
     Route: 048
     Dates: start: 20130325, end: 2013
  3. AMLOR [Concomitant]
     Route: 065
  4. COVERSYL [Concomitant]
     Route: 065
  5. TAHOR [Concomitant]
     Route: 065
  6. CARDENSIEL [Concomitant]
     Route: 065
  7. FUROSEMIDE [Concomitant]
     Route: 065
  8. JANUVIA [Concomitant]
     Route: 065

REACTIONS (2)
  - Cerebral infarction [Unknown]
  - Drug ineffective [Unknown]
